FAERS Safety Report 8455142-0 (Version None)
Quarter: 2012Q2

REPORT INFORMATION
  Report Type: 
  Country: None (occurrence: None)
  Receive Date: 20120614
  Receipt Date: 20120614
  Transmission Date: 20120825
  Serious: Yes (Life-Threatening)
  Sender: FDA-Public Use
  Company Number: None

PATIENT
  Age: 80 Year
  Sex: Male
  Weight: 66 kg

DRUGS (1)
  1. RIVAROXABAN 20MG [Suspect]
     Indication: CEREBROVASCULAR ACCIDENT
     Dates: start: 20120301, end: 20120605

REACTIONS (2)
  - SUBDURAL HAEMATOMA [None]
  - INTERNATIONAL NORMALISED RATIO INCREASED [None]
